FAERS Safety Report 9399431 (Version 3)
Quarter: 2013Q3

REPORT INFORMATION
  Report Type: Report from Study
  Country: US (occurrence: US)
  Receive Date: 20130715
  Receipt Date: 20130815
  Transmission Date: 20140515
  Serious: Yes (Death, Hospitalization, Other)
  Sender: FDA-Public Use
  Company Number: US-TEVA-418512USA

PATIENT
  Age: 61 Year
  Sex: Male

DRUGS (5)
  1. CLOZAPINE [Suspect]
     Dosage: QHS
     Route: 048
     Dates: end: 20130704
  2. PRAVASTATIN [Suspect]
     Dosage: QHS
  3. LAMOTRIGINE [Concomitant]
     Dosage: 400 MILLIGRAM DAILY;
  4. LORAZEPAM [Concomitant]
     Indication: ANXIETY
     Dosage: 3 MILLIGRAM DAILY; PRN
  5. METOPROLOL TARTRATE [Concomitant]
     Dosage: 100 MILLIGRAM DAILY;

REACTIONS (11)
  - Pulseless electrical activity [Fatal]
  - Renal tubular necrosis [Fatal]
  - Renal failure chronic [Fatal]
  - Agranulocytosis [Fatal]
  - Fall [Unknown]
  - Myocardial infarction [Unknown]
  - Rhabdomyolysis [Recovered/Resolved with Sequelae]
  - Renal impairment [Unknown]
  - Hypoglycaemia [Recovered/Resolved with Sequelae]
  - Leukopenia [Unknown]
  - Pancytopenia [Unknown]
